FAERS Safety Report 25362786 (Version 1)
Quarter: 2025Q2

REPORT INFORMATION
  Report Type: Spontaneous
  Country: US (occurrence: US)
  Receive Date: 20250527
  Receipt Date: 20250527
  Transmission Date: 20250717
  Serious: No
  Sender: BAYER HEALTHCARE LLC
  Company Number: US-BAYER-2025A067546

PATIENT

DRUGS (1)
  1. MIRALAX [Suspect]
     Active Substance: POLYETHYLENE GLYCOL 3350
     Indication: Gastrointestinal disorder
     Route: 048

REACTIONS (3)
  - Product prescribing issue [Not Recovered/Not Resolved]
  - Drug effective for unapproved indication [None]
  - Incorrect product administration duration [Not Recovered/Not Resolved]
